FAERS Safety Report 5796291-5 (Version None)
Quarter: 2008Q2

REPORT INFORMATION
  Report Type: 
  Country: None (occurrence: None)
  Receive Date: 20080626
  Receipt Date: 20080620
  Transmission Date: 20081010
  Serious: Yes (Other)
  Sender: FDA-Public Use
  Company Number: 028620

PATIENT
  Sex: Female
  Weight: 49.9 kg

DRUGS (3)
  1. FLUDROCORTISONE ACETATE [Suspect]
     Indication: HIP FRACTURE
     Dosage: 2 TABLET EVERY MORNING, ORAL
     Route: 048
     Dates: start: 20061001
  2. FLUDROCORTISONE ACETATE [Suspect]
     Indication: WRIST FRACTURE
     Dosage: 2 TABLET EVERY MORNING, ORAL
     Route: 048
     Dates: start: 20061001
  3. TRENTAL [Concomitant]

REACTIONS (2)
  - BREAST CANCER IN SITU [None]
  - METASTASES TO LYMPH NODES [None]
